FAERS Safety Report 20431220 (Version 1)
Quarter: 2022Q1

REPORT INFORMATION
  Report Type: Spontaneous
  Country: US (occurrence: US)
  Receive Date: 20220204
  Receipt Date: 20220204
  Transmission Date: 20220424
  Serious: No
  Sender: FDA-Public Use
  Company Number: US-BAUSCH-BL-2022-002673

PATIENT
  Age: 18 Year
  Sex: Female

DRUGS (3)
  1. TRULANCE [Suspect]
     Active Substance: PLECANATIDE
     Indication: Impaired gastric emptying
     Dosage: ONCE IN A DAY
     Route: 048
     Dates: start: 20220122, end: 20220123
  2. TRULANCE [Suspect]
     Active Substance: PLECANATIDE
     Indication: Constipation
  3. NURTEC ODT [Suspect]
     Active Substance: RIMEGEPANT SULFATE
     Indication: Product used for unknown indication
     Route: 065

REACTIONS (3)
  - Throat tightness [Unknown]
  - Wheezing [Unknown]
  - Drug hypersensitivity [Unknown]

NARRATIVE: CASE EVENT DATE: 20220101
